FAERS Safety Report 6918718-5 (Version None)
Quarter: 2010Q3

REPORT INFORMATION
  Report Type: 
  Country: None (occurrence: None)
  Receive Date: 20100811
  Receipt Date: 20100809
  Transmission Date: 20110219
  Serious: Yes (Death)
  Sender: FDA-Public Use
  Company Number: PHHY2010BR52075

PATIENT
  Sex: Female

DRUGS (1)
  1. DIOVAN HCT [Suspect]
     Indication: HYPERTENSION
     Dosage: 320/12.5 MG, 1 TIME DAILY
     Route: 048

REACTIONS (3)
  - ABDOMINAL PAIN UPPER [None]
  - LOCALISED INFECTION [None]
  - SEPTIC SHOCK [None]
